FAERS Safety Report 7305416-1 (Version None)
Quarter: 2011Q1

REPORT INFORMATION
  Report Type: 
  Country: None (occurrence: None)
  Receive Date: 20110222
  Receipt Date: 20110207
  Transmission Date: 20110831
  Serious: Yes (Hospitalization)
  Sender: FDA-Public Use
  Company Number: DE-PFIZER INC-2011035391

PATIENT
  Age: 66 Year
  Sex: Female

DRUGS (6)
  1. AMIODARONE HCL [Suspect]
     Indication: ARRHYTHMIA
     Dosage: 200 MG, DAILY
     Route: 048
  2. MARCUMAR [Concomitant]
     Dosage: UNK
  3. DIOVANE [Concomitant]
  4. CARVEDILOL [Concomitant]
  5. HYDROCHLOROTHIAZIDE [Concomitant]
  6. DRONEDARONE [Suspect]
     Indication: ARRHYTHMIA
     Dosage: 400 MG, 2X/DAY
     Route: 048

REACTIONS (4)
  - HYPERTENSION [None]
  - PHOTOSENSITIVITY REACTION [None]
  - ATRIAL FIBRILLATION [None]
  - ALOPECIA [None]
